FAERS Safety Report 6688673-4 (Version None)
Quarter: 2010Q2

REPORT INFORMATION
  Report Type: 
  Country: None (occurrence: None)
  Receive Date: 20100420
  Receipt Date: 20100419
  Transmission Date: 20101027
  Serious: Yes (Hospitalization)
  Sender: FDA-Public Use
  Company Number: A0814559A

PATIENT
  Age: 46 Year
  Sex: Male

DRUGS (1)
  1. ROSIGLITAZONE MALEATE [Suspect]
     Dosage: 4MG AT NIGHT
     Route: 048
     Dates: start: 20060309

REACTIONS (1)
  - MYOCARDIAL INFARCTION [None]
